FAERS Safety Report 18077208 (Version 2)
Quarter: 2020Q3

REPORT INFORMATION
  Report Type: Spontaneous
  Country: PT (occurrence: PT)
  Receive Date: 20200727
  Receipt Date: 20200811
  Transmission Date: 20201103
  Serious: Yes (Other)
  Sender: FDA-Public Use
  Company Number: PT-PFIZER INC-2020278256

PATIENT
  Age: 86 Year
  Sex: Female
  Weight: 44 kg

DRUGS (18)
  1. PLAQUINOL [Suspect]
     Active Substance: HYDROXYCHLOROQUINE SULFATE
     Indication: COVID-19
     Dosage: 400MG 12 / 12H IN D0
     Route: 048
     Dates: start: 20200325
  2. ESCITALOPRAM [Concomitant]
     Active Substance: ESCITALOPRAM OXALATE
     Dosage: 10 MG, DAILY
     Route: 048
     Dates: start: 20200325, end: 20200325
  3. PARACETAMOL [Concomitant]
     Active Substance: ACETAMINOPHEN
     Dosage: AS NEEDED
     Route: 042
     Dates: start: 20200329, end: 20200409
  4. GABAPENTIN. [Concomitant]
     Active Substance: GABAPENTIN
     Dosage: 200 MG, DAILY
     Route: 048
     Dates: start: 20200325, end: 20200409
  5. AZITHROMYCIN ANHYDROUS. [Suspect]
     Active Substance: AZITHROMYCIN ANHYDROUS
     Indication: COVID-19
     Dosage: 500 MG, SINGLE
     Route: 042
     Dates: start: 20200330, end: 20200330
  6. METOCLOPRAMIDE. [Concomitant]
     Active Substance: METOCLOPRAMIDE
     Dosage: SOS UP TO A MAXIMUM OF 30 MG / DAY
     Route: 042
     Dates: start: 20200329, end: 20200409
  7. AMLODIPINE [Concomitant]
     Active Substance: AMLODIPINE BESYLATE
     Dosage: 5 MG, DAILY
     Route: 048
     Dates: start: 20200325, end: 20200409
  8. LOSARTAN AND HYDROCHLOROTHIAZIDE [Concomitant]
     Active Substance: HYDROCHLOROTHIAZIDE\LOSARTAN POTASSIUM
     Dosage: 1 DF, DAILY
     Route: 048
     Dates: start: 20200325, end: 20200409
  9. PIPERACILLIN AND TAZOBACTAM [Concomitant]
     Active Substance: PIPERACILLIN SODIUM\TAZOBACTAM SODIUM
     Dosage: 18000 MG, DAILY
     Route: 042
     Dates: start: 20200330, end: 20200406
  10. AZITHROMYCIN ANHYDROUS. [Concomitant]
     Active Substance: AZITHROMYCIN ANHYDROUS
     Indication: COVID-19
     Dosage: 500 MG, 1X/DAY
     Route: 048
     Dates: start: 20200331, end: 20200406
  11. BROMAZEPAM [Concomitant]
     Active Substance: BROMAZEPAM
     Dosage: AS NEEDED (SOS UP TO 1.5 MG / DAY)
     Route: 048
     Dates: start: 20200324, end: 20200409
  12. FUROSEMIDE. [Concomitant]
     Active Substance: FUROSEMIDE
     Dosage: 40 MG, DAILY
     Route: 048
     Dates: start: 20200325, end: 20200325
  13. POTASSIUM CHLORIDE. [Concomitant]
     Active Substance: POTASSIUM CHLORIDE
     Dosage: 40 MEQ, 2X/DAY (EVERY 12 HOURS)
     Route: 042
     Dates: start: 20200325, end: 20200326
  14. PLAQUINOL [Suspect]
     Active Substance: HYDROXYCHLOROQUINE SULFATE
     Dosage: 200MG 12 / 12H
     Route: 048
     Dates: end: 20200404
  15. PANTOPRAZOLE [Concomitant]
     Active Substance: PANTOPRAZOLE
     Dosage: 20 MG, DAILY
     Route: 048
     Dates: start: 20200325, end: 20200409
  16. POTASSIUM CHLORIDE. [Concomitant]
     Active Substance: POTASSIUM CHLORIDE
     Dosage: 1200 MG, DAILY
     Route: 048
     Dates: start: 20200325, end: 20200326
  17. ENOXAPARIN SODIUM. [Concomitant]
     Active Substance: ENOXAPARIN SODIUM
     Dosage: 40 MG, DAILY
     Dates: start: 20200325, end: 20200409
  18. ACETYLSALICYLIC ACID [Concomitant]
     Active Substance: ASPIRIN
     Dosage: 100 MG, DAILY
     Route: 048
     Dates: start: 20200325, end: 20200409

REACTIONS (3)
  - Product use in unapproved indication [Unknown]
  - Cholestasis [Recovered/Resolved]
  - Off label use [Unknown]

NARRATIVE: CASE EVENT DATE: 20200330
